FAERS Safety Report 13844902 (Version 2)
Quarter: 2017Q3

REPORT INFORMATION
  Report Type: Report from Study
  Country: GB (occurrence: GB)
  Receive Date: 20170808
  Receipt Date: 20170810
  Transmission Date: 20171127
  Serious: Yes (Hospitalization, Other)
  Sender: FDA-Public Use
  Company Number: GB-BAYER-2017-148858

PATIENT
  Age: 79 Year
  Sex: Female

DRUGS (1)
  1. DACARBAZINE. [Suspect]
     Active Substance: DACARBAZINE
     Dosage: UNK

REACTIONS (3)
  - Peripheral nerve palsy [Recovered/Resolved]
  - Autoimmune hepatitis [None]
  - Bulbar palsy [Recovered/Resolved]
